FAERS Safety Report 6343180-3 (Version None)
Quarter: 2009Q3

REPORT INFORMATION
  Report Type: 
  Country: None (occurrence: None)
  Receive Date: 20090908
  Receipt Date: 20090831
  Transmission Date: 20100115
  Serious: Yes (Other)
  Sender: FDA-Public Use
  Company Number: US-ASTRAZENECA-2009UW19368

PATIENT
  Sex: Female

DRUGS (1)
  1. METOPROLOL SUCCINATE [Suspect]
     Route: 048

REACTIONS (11)
  - ABDOMINAL PAIN [None]
  - DECREASED APPETITE [None]
  - DEPRESSION [None]
  - HAEMATOCHEZIA [None]
  - HEPATIC FAILURE [None]
  - HOT FLUSH [None]
  - HYPERHIDROSIS [None]
  - MEDICATION ERROR [None]
  - PROCTALGIA [None]
  - RASH [None]
  - SUICIDAL IDEATION [None]
